FAERS Safety Report 6120585-7 (Version None)
Quarter: 2009Q1

REPORT INFORMATION
  Report Type: 
  Country: None (occurrence: None)
  Receive Date: 20090312
  Receipt Date: 20090312
  Transmission Date: 20090719
  Serious: No
  Sender: FDA-Public Use
  Company Number: None

PATIENT
  Age: 50 Year
  Sex: Male
  Weight: 127.9 kg

DRUGS (2)
  1. METHADONE HCL [Suspect]
     Indication: PAIN MANAGEMENT
     Dosage: 10MG TID PO
     Route: 048
     Dates: start: 20051013, end: 20090312
  2. ZIPRASIDONE HCL [Suspect]
     Dosage: 120 MG BID PO
     Route: 048
     Dates: start: 20040624

REACTIONS (1)
  - ELECTROCARDIOGRAM QT PROLONGED [None]
